FAERS Safety Report 10767279 (Version 1)
Quarter: 2015Q1

REPORT INFORMATION
  Report Type: Spontaneous
  Country: US (occurrence: US)
  Receive Date: 20150205
  Receipt Date: 20150205
  Transmission Date: 20150721
  Serious: No
  Sender: FDA-Public Use
  Company Number: US-GALDERMA-US14001866

PATIENT
  Age: 19 Year
  Sex: Female

DRUGS (5)
  1. DOVE SOAP FOR SENSITIVE SKIN [Concomitant]
     Indication: THERAPEUTIC SKIN CARE TOPICAL
     Route: 061
     Dates: start: 2011
  2. EPIDUO [Suspect]
     Active Substance: ADAPALENE\BENZOYL PEROXIDE
     Indication: SKIN HYPERPIGMENTATION
     Route: 061
     Dates: start: 20140509, end: 20140516
  3. ADAPALENE (ADAPALENE) GEL, 0.1% [Concomitant]
     Indication: SKIN HYPERPIGMENTATION
     Dosage: 0.1%
     Route: 061
     Dates: start: 20140509, end: 20140516
  4. CETAPHIL DERMACONTROL SPF 30 [Concomitant]
     Active Substance: AVOBENZONE\OCTISALATE\OCTOCRYLENE
     Indication: DRY SKIN PROPHYLAXIS
     Route: 061
     Dates: start: 20140509, end: 20140516
  5. CLEAN AND CLEAR CLEANSER [Concomitant]
     Indication: THERAPEUTIC SKIN CARE TOPICAL
     Route: 061
     Dates: start: 20140509, end: 20140516

REACTIONS (2)
  - Product use issue [Recovered/Resolved]
  - Skin burning sensation [Not Recovered/Not Resolved]

NARRATIVE: CASE EVENT DATE: 20140509
